FAERS Safety Report 21567027 (Version 4)
Quarter: 2022Q4

REPORT INFORMATION
  Report Type: Spontaneous
  Country: US (occurrence: US)
  Receive Date: 20221108
  Receipt Date: 20221230
  Transmission Date: 20230113
  Serious: No
  Sender: FDA-Public Use
  Company Number: US-JNJFOC-20221052102

PATIENT
  Age: 35 Year
  Sex: Male
  Weight: 93.978 kg

DRUGS (17)
  1. RISPERDAL CONSTA [Suspect]
     Active Substance: RISPERIDONE
     Indication: Hallucination, auditory
     Dosage: SYRINGE: LGS44, VIAL: 111045P1; RISPERDAL CONSTA USED ON 25-OCT-2022
     Route: 030
     Dates: start: 201904
  2. RISPERDAL CONSTA [Suspect]
     Active Substance: RISPERIDONE
     Indication: Schizoaffective disorder
  3. RISPERDAL CONSTA [Suspect]
     Active Substance: RISPERIDONE
     Indication: Bipolar disorder
  4. RISPERDAL CONSTA [Suspect]
     Active Substance: RISPERIDONE
  5. RISPERDAL CONSTA [Suspect]
     Active Substance: RISPERIDONE
  6. RISPERDAL CONSTA [Suspect]
     Active Substance: RISPERIDONE
  7. RISPERDAL CONSTA [Suspect]
     Active Substance: RISPERIDONE
  8. RISPERDAL CONSTA [Suspect]
     Active Substance: RISPERIDONE
  9. RISPERDAL CONSTA [Suspect]
     Active Substance: RISPERIDONE
     Indication: Hallucination, auditory
     Dosage: RISPERDAL CONSTA USED ON 27-SEP-2022
     Route: 030
     Dates: start: 201904
  10. RISPERDAL CONSTA [Suspect]
     Active Substance: RISPERIDONE
     Indication: Schizoaffective disorder
  11. RISPERDAL CONSTA [Suspect]
     Active Substance: RISPERIDONE
     Indication: Bipolar disorder
  12. RISPERDAL CONSTA [Suspect]
     Active Substance: RISPERIDONE
  13. RISPERDAL CONSTA [Suspect]
     Active Substance: RISPERIDONE
  14. RISPERDAL CONSTA [Suspect]
     Active Substance: RISPERIDONE
  15. RISPERDAL CONSTA [Suspect]
     Active Substance: RISPERIDONE
  16. RISPERDAL CONSTA [Suspect]
     Active Substance: RISPERIDONE
  17. BUSPIRONE [Concomitant]
     Active Substance: BUSPIRONE HYDROCHLORIDE
     Indication: Product used for unknown indication
     Route: 065

REACTIONS (2)
  - Needle issue [Unknown]
  - Wrong technique in device usage process [Unknown]

NARRATIVE: CASE EVENT DATE: 20220927
